FAERS Safety Report 13648939 (Version 2)
Quarter: 2017Q2

REPORT INFORMATION
  Report Type: Report from Study
  Country: US (occurrence: US)
  Receive Date: 20170613
  Receipt Date: 20170623
  Transmission Date: 20170830
  Serious: Yes (Hospitalization)
  Sender: FDA-Public Use
  Company Number: US-ACTELION-A-NJ2017-155071

PATIENT
  Age: 66 Year
  Sex: Female

DRUGS (4)
  1. PROMACTA [Concomitant]
     Active Substance: ELTROMBOPAG OLAMINE
  2. ORENITRAM [Concomitant]
     Active Substance: TREPROSTINIL
  3. TORSEMIDE. [Concomitant]
     Active Substance: TORSEMIDE
  4. TRACLEER [Suspect]
     Active Substance: BOSENTAN
     Indication: PULMONARY ARTERIAL HYPERTENSION
     Dosage: 125 MG, BID
     Route: 048
     Dates: start: 20160130

REACTIONS (1)
  - Tenoplasty [Recovering/Resolving]

NARRATIVE: CASE EVENT DATE: 20170531
